FAERS Safety Report 4308586-2 (Version None)
Quarter: 2004Q1

REPORT INFORMATION
  Report Type: 
  Country: None (occurrence: None)
  Receive Date: 20040301
  Receipt Date: 20040218
  Transmission Date: 20041129
  Serious: Yes (Death, Other)
  Sender: FDA-Public Use
  Company Number: WAES 0402NLD00021

PATIENT
  Age: 54 Year
  Sex: Female

DRUGS (3)
  1. AMPHOTERICIN B [Concomitant]
     Indication: INFECTION
  2. CANCIDAS [Suspect]
  3. CIPROFLOXACIN [Concomitant]
     Indication: INFECTION

REACTIONS (5)
  - BRONCHOPULMONARY ASPERGILLOSIS [None]
  - DISEASE PROGRESSION [None]
  - MULTI-ORGAN FAILURE [None]
  - MYOCARDIAL INFARCTION [None]
  - SEPTIC SHOCK [None]
